FAERS Safety Report 11418719 (Version 1)
Quarter: 2015Q3

REPORT INFORMATION
  Report Type: Spontaneous
  Country: BR (occurrence: BR)
  Receive Date: 20150826
  Receipt Date: 20150826
  Transmission Date: 20151125
  Serious: Yes (Hospitalization)
  Sender: FDA-Public Use
  Company Number: BR-009507513-1508BRA010396

PATIENT
  Age: 32 Year
  Sex: Female
  Weight: 65 kg

DRUGS (2)
  1. MERCILON [Suspect]
     Active Substance: DESOGESTREL\ETHINYL ESTRADIOL
     Dosage: TOOK THE TWO LAST PILLS FROM CURRENT BLISTER BY MISTAKE
     Route: 048
     Dates: start: 20150818, end: 20150818
  2. MERCILON [Suspect]
     Active Substance: DESOGESTREL\ETHINYL ESTRADIOL
     Indication: CONTRACEPTION
     Dosage: 1 DF, QD FOR 21 DAYS AND 1 WEEK OF PILL FREE INTERVAL
     Route: 048
     Dates: start: 2002, end: 20150817

REACTIONS (7)
  - Benign neoplasm of thyroid gland [Recovered/Resolved]
  - Drug administration error [Unknown]
  - Pain in extremity [Recovering/Resolving]
  - Exostosis [Recovering/Resolving]
  - Arthralgia [Recovering/Resolving]
  - Drug dose omission [Unknown]
  - Inappropriate schedule of drug administration [Unknown]

NARRATIVE: CASE EVENT DATE: 2013
